FAERS Safety Report 5866227-7 (Version None)
Quarter: 2008Q3

REPORT INFORMATION
  Report Type: 
  Country: None (occurrence: None)
  Receive Date: 20080829
  Receipt Date: 20080819
  Transmission Date: 20090109
  Serious: Yes (Other)
  Sender: FDA-Public Use
  Company Number: JP-PFIZER INC-2008070056

PATIENT
  Age: 67 Year
  Sex: Male

DRUGS (5)
  1. CELECOXIB [Suspect]
     Route: 048
     Dates: start: 20080501, end: 20080601
  2. DOXORUBICIN HCL [Suspect]
     Indication: KAPOSI'S SARCOMA
     Route: 042
     Dates: start: 20080421, end: 20080623
  3. ZIAGEN [Concomitant]
  4. KALETRA [Concomitant]
  5. EPIVIR [Concomitant]

REACTIONS (1)
  - COLITIS [None]
